FAERS Safety Report 8206616 (Version 2)
Quarter: 2013Q4

REPORT INFORMATION
  Report Type: Spontaneous
  Country: US (occurrence: US)
  Receive Date: 20111028
  Receipt Date: 20131220
  Transmission Date: 20140711
  Serious: Yes (Hospitalization)
  Sender: FDA-Public Use
  Company Number: US-GLAXOSMITHKLINE-A0900993A

PATIENT
  Sex: Female

DRUGS (2)
  1. ADVAIR [Suspect]
     Indication: NASOPHARYNGITIS
     Route: 055
     Dates: start: 20100927
  2. VENTOLIN HFA [Suspect]
     Indication: PRODUCT USED FOR UNKNOWN INDICATION
     Route: 065
     Dates: start: 20130819

REACTIONS (4)
  - Asthma [Unknown]
  - Aphonia [Unknown]
  - Drug ineffective [Unknown]
  - Viral infection [Unknown]
